FAERS Safety Report 5613657-4 (Version None)
Quarter: 2008Q1

REPORT INFORMATION
  Report Type: 
  Country: None (occurrence: None)
  Receive Date: 20080205
  Receipt Date: 20080129
  Transmission Date: 20080703
  Serious: Yes (Other)
  Sender: FDA-Public Use
  Company Number: ES-JNJFOC-20080107636

PATIENT
  Sex: Male

DRUGS (4)
  1. REMICADE [Suspect]
     Indication: CROHN'S DISEASE
     Route: 042
  2. PYRIDOXINE [Concomitant]
  3. CEMIDON [Concomitant]
     Indication: TUBERCULOSIS
  4. IMUREL [Concomitant]

REACTIONS (1)
  - TUBERCULOSIS [None]
